FAERS Safety Report 6669807-4 (Version None)
Quarter: 2010Q2

REPORT INFORMATION
  Report Type: 
  Country: None (occurrence: None)
  Receive Date: 20100402
  Receipt Date: 20100324
  Transmission Date: 20101027
  Serious: Yes (Hospitalization)
  Sender: FDA-Public Use
  Company Number: 2010SP018108

PATIENT
  Age: 66 Year
  Sex: Male

DRUGS (3)
  1. MIRTAZAPINE [Suspect]
     Indication: DRUG USE FOR UNKNOWN INDICATION
     Dosage: PO
     Route: 048
     Dates: end: 20090402
  2. PROZAC [Suspect]
     Indication: DEPRESSION
     Dosage: PO
     Route: 048
     Dates: start: 20070101, end: 20090402
  3. ABILIFY [Suspect]
     Indication: BIPOLAR DISORDER
     Dosage: PO
     Route: 048
     Dates: end: 20090402

REACTIONS (3)
  - CHOLECYSTITIS [None]
  - HEPATITIS [None]
  - VOMITING [None]
